FAERS Safety Report 6931051-0 (Version None)
Quarter: 2010Q3

REPORT INFORMATION
  Report Type: 
  Country: None (occurrence: None)
  Receive Date: 20100817
  Receipt Date: 20100817
  Transmission Date: 20110219
  Serious: Yes (Other)
  Sender: FDA-Public Use
  Company Number: None

PATIENT
  Sex: Female
  Weight: 92.7 kg

DRUGS (8)
  1. BANZEL [Suspect]
     Indication: COMPLEX PARTIAL SEIZURES
     Dosage: 600 MG BID PO
     Route: 048
     Dates: start: 20100721
  2. BANZEL [Suspect]
     Indication: COMPLEX PARTIAL SEIZURES
     Dosage: 600 MG BID PO
     Route: 048
     Dates: start: 20100803
  3. FELBATOL [Concomitant]
  4. DEPAKOTE [Concomitant]
  5. LYRICA [Concomitant]
  6. CLONAZEPAM [Concomitant]
  7. LEXAPRO [Concomitant]
  8. FOLIC ACID [Concomitant]

REACTIONS (2)
  - PYREXIA [None]
  - RASH GENERALISED [None]
